FAERS Safety Report 23395198 (Version 1)
Quarter: 2024Q1

REPORT INFORMATION
  Report Type: Report from Study
  Country: GB (occurrence: GB)
  Receive Date: 20240112
  Receipt Date: 20240112
  Transmission Date: 20240410
  Serious: Yes (Other)
  Sender: FDA-Public Use
  Company Number: GB-Merck Healthcare KGaA-2024001419

PATIENT
  Sex: Female

DRUGS (2)
  1. MAVENCLAD [Suspect]
     Active Substance: CLADRIBINE
     Indication: Multiple sclerosis
     Dosage: YEAR ONE WEEK ONE THERAPY AT A DOSE OF TWO TABLETS ON DAY 1 TO 3 AND ONE TABLET ON DAY 4 TO 5
     Route: 048
     Dates: start: 20231120
  2. MAVENCLAD [Suspect]
     Active Substance: CLADRIBINE
     Dosage: YEAR ONE WEEK TWO THERAPY AT A DOSAGE OF 2 TABLETS ON DAYS 1 AND 2 AND 1 TABLET ON DAYS 3 TO 5
     Route: 048
     Dates: start: 20231218

REACTIONS (2)
  - Pneumonia [Recovering/Resolving]
  - Insomnia [Recovering/Resolving]
